FAERS Safety Report 7973813-7 (Version None)
Quarter: 2011Q4

REPORT INFORMATION
  Report Type: 
  Country: None (occurrence: None)
  Receive Date: 20111213
  Receipt Date: 20111130
  Transmission Date: 20120403
  Serious: Yes (Hospitalization, Other)
  Sender: FDA-Public Use
  Company Number: DE-ELI_LILLY_AND_COMPANY-DE201112000018

PATIENT
  Age: 49 Year
  Sex: Male

DRUGS (4)
  1. MIRTAZAPINE [Concomitant]
     Dosage: 30 MG, UNKNOWN
     Dates: start: 20101201
  2. DOMINAL [Concomitant]
     Dosage: 40 MG, QD
     Dates: start: 20110201
  3. CYMBALTA [Interacting]
     Dosage: 30 MG, OTHER
     Dates: start: 20110201
  4. CYMBALTA [Suspect]
     Indication: DEPRESSION
     Dosage: 60 MG, EACH MORNING
     Route: 048
     Dates: start: 20110201

REACTIONS (12)
  - HOSPITALISATION [None]
  - BLOOD CHOLESTEROL INCREASED [None]
  - TYPE 2 DIABETES MELLITUS [None]
  - ALANINE AMINOTRANSFERASE [None]
  - BLOOD GLUCOSE INCREASED [None]
  - BLOOD TRIGLYCERIDES [None]
  - OESOPHAGEAL ULCER [None]
  - GAMMA-GLUTAMYLTRANSFERASE [None]
  - GLYCOSYLATED HAEMOGLOBIN INCREASED [None]
  - ANXIETY [None]
  - METABOLIC SYNDROME [None]
  - PANIC ATTACK [None]
